FAERS Safety Report 14412173 (Version 1)
Quarter: 2018Q1

REPORT INFORMATION
  Report Type: Spontaneous
  Country: IN (occurrence: IN)
  Receive Date: 20180117
  Receipt Date: 20180117
  Transmission Date: 20180509
  Serious: Yes (Other)
  Sender: FDA-Public Use
  Company Number: None

PATIENT
  Sex: Female
  Weight: 61 kg

DRUGS (3)
  1. OLSAR H 20 [Concomitant]
  2. THYRONORM [Concomitant]
     Active Substance: LEVOTHYROXINE
  3. PRESSCLAV-375, AMOXICILLIN + POTASSIUM CLAVULANATE TABLETS IP [Suspect]
     Active Substance: AMOXICILLIN\CLAVULANATE POTASSIUM
     Indication: TOOTH INFECTION
     Dosage: ?          QUANTITY:1 TABLET(S);?
     Route: 048
     Dates: start: 20180115, end: 20180117

REACTIONS (3)
  - Pruritus [None]
  - Hypersensitivity [None]
  - Rash [None]

NARRATIVE: CASE EVENT DATE: 20180117
